FAERS Safety Report 4836609-0 (Version None)
Quarter: 2005Q4

REPORT INFORMATION
  Report Type: 
  Country: None (occurrence: None)
  Receive Date: 20051121
  Receipt Date: 20051111
  Transmission Date: 20060501
  Serious: Yes (Hospitalization, Other)
  Sender: FDA-Public Use
  Company Number: 2005US-01137

PATIENT
  Sex: Female

DRUGS (5)
  1. ZIDOVUDINE TABLETS(ZIDOVUDINE) TABLET [Suspect]
  2. LAMIVUDINE [Suspect]
     Indication: HIV INFECTION
  3. EFAVIRENZ [Suspect]
     Indication: HIV INFECTION
  4. NEVIRAPINE [Suspect]
     Indication: HIV INFECTION
  5. DIDANOSINE [Suspect]
     Indication: HIV INFECTION

REACTIONS (29)
  - AGITATION [None]
  - ANAEMIA [None]
  - APRAXIA [None]
  - ASTHENIA [None]
  - CEREBELLAR SYNDROME [None]
  - DEMYELINATION [None]
  - DEPRESSION [None]
  - DYSARTHRIA [None]
  - EPSTEIN-BARR VIRUS INFECTION [None]
  - EXTENSOR PLANTAR RESPONSE [None]
  - EYE HAEMORRHAGE [None]
  - FACIAL PALSY [None]
  - HEADACHE [None]
  - HYPERREFLEXIA [None]
  - IMMUNE RECONSTITUTION SYNDROME [None]
  - LEUKOPENIA [None]
  - LIVER DISORDER [None]
  - LYMPH NODE TUBERCULOSIS [None]
  - LYMPHADENOPATHY [None]
  - MUSCULAR WEAKNESS [None]
  - NAUSEA [None]
  - PYRAMIDAL TRACT SYNDROME [None]
  - RETINAL HAEMORRHAGE [None]
  - SOMNOLENCE [None]
  - SPLEEN DISORDER [None]
  - THERAPY NON-RESPONDER [None]
  - UPPER MOTOR NEURONE LESION [None]
  - VASCULITIS [None]
  - VOMITING [None]
